FAERS Safety Report 14108502 (Version 4)
Quarter: 2018Q1

REPORT INFORMATION
  Report Type: Report from Study
  Country: US (occurrence: US)
  Receive Date: 20171019
  Receipt Date: 20180117
  Transmission Date: 20180508
  Serious: Yes (Death, Hospitalization, Other)
  Sender: FDA-Public Use
  Company Number: US-SAOL THERAPEUTICS-2017SAO01582

PATIENT
  Age: 68 Year
  Sex: Male
  Weight: 78.73 kg

DRUGS (9)
  1. BUPIVACAINE. [Suspect]
     Active Substance: BUPIVACAINE
     Dosage: 11.239 MG, \DAY
     Route: 037
     Dates: end: 20170906
  2. BUPIVACAINE. [Suspect]
     Active Substance: BUPIVACAINE
     Dosage: 15.391 MG, \DAY, MAX DOSE
     Route: 037
     Dates: start: 20170906
  3. HYDROMORPHONE [Suspect]
     Active Substance: HYDROMORPHONE
     Dosage: 0.976 MG, \DAY, MAX DOSE
     Route: 037
     Dates: end: 20170906
  4. HYDROMORPHONE [Suspect]
     Active Substance: HYDROMORPHONE
     Dosage: 0.799 MG, \DAY
     Route: 037
     Dates: start: 20170906
  5. BUPIVACAINE. [Suspect]
     Active Substance: BUPIVACAINE
     Dosage: 14.648 MG, \DAY, MAX DOSE
     Route: 037
     Dates: end: 20170906
  6. HYDROMORPHONE [Suspect]
     Active Substance: HYDROMORPHONE
     Dosage: 0.749 MG, \DAY
     Route: 037
     Dates: end: 20170906
  7. BUPIVACAINE. [Suspect]
     Active Substance: BUPIVACAINE
     Dosage: 11.995 MG, \DAY
     Route: 037
     Dates: start: 20170906
  8. HYDROMORPHONE [Suspect]
     Active Substance: HYDROMORPHONE
     Dosage: 1.026 MG, \DAY
     Route: 037
     Dates: start: 20170906
  9. COMPOUNDED BACLOFEN [Suspect]
     Active Substance: BACLOFEN
     Dosage: UNK
     Route: 037
     Dates: start: 20170927

REACTIONS (9)
  - Hypoaesthesia [Not Recovered/Not Resolved]
  - Overdose [Recovered/Resolved]
  - Asthenia [Not Recovered/Not Resolved]
  - Lung cancer metastatic [Fatal]
  - Fall [Not Recovered/Not Resolved]
  - Diplopia [Not Recovered/Not Resolved]
  - Subdural haematoma [Not Recovered/Not Resolved]
  - Gait disturbance [Not Recovered/Not Resolved]
  - Headache [Not Recovered/Not Resolved]

NARRATIVE: CASE EVENT DATE: 20170906
